FAERS Safety Report 8391777-1 (Version None)
Quarter: 2012Q2

REPORT INFORMATION
  Report Type: 
  Country: None (occurrence: None)
  Receive Date: 20120529
  Receipt Date: 20120528
  Transmission Date: 20120825
  Serious: Yes (Hospitalization)
  Sender: FDA-Public Use
  Company Number: IT-ROCHE-1072941

PATIENT
  Sex: Male

DRUGS (2)
  1. ATRIPLA [Concomitant]
     Route: 065
  2. PEGASYS [Suspect]
     Indication: HIV INFECTION
     Route: 058
     Dates: start: 20111109, end: 20120528

REACTIONS (2)
  - ANXIETY [None]
  - BINGE DRINKING [None]
